FAERS Safety Report 12042083 (Version 1)
Quarter: 2016Q1

REPORT INFORMATION
  Report Type: Other
  Country: PL (occurrence: PL)
  Receive Date: 20160208
  Receipt Date: 20160208
  Transmission Date: 20160526
  Serious: Yes (Other)
  Sender: FDA-Public Use
  Company Number: PL-PFM-PL-2016-0381

PATIENT
  Age: 70 Year
  Sex: Female
  Weight: 72 kg

DRUGS (1)
  1. NAVELBINE [Suspect]
     Active Substance: VINORELBINE TARTRATE
     Indication: BREAST CANCER
     Dosage: UNK
     Route: 042
     Dates: start: 20151029, end: 20151029

REACTIONS (1)
  - Spinal pain [Recovered/Resolved]

NARRATIVE: CASE EVENT DATE: 20151029
